FAERS Safety Report 4735207-7 (Version None)
Quarter: 2005Q3

REPORT INFORMATION
  Report Type: 
  Country: None (occurrence: None)
  Receive Date: 20050804
  Receipt Date: 20050725
  Transmission Date: 20060218
  Serious: Yes (Other)
  Sender: FDA-Public Use
  Company Number: 2005106706

PATIENT
  Age: 73 Year
  Sex: Female
  Weight: 81.6475 kg

DRUGS (10)
  1. CELEBREX [Suspect]
     Indication: ARTHRITIS
     Dosage: 200 MG (100 MG, 2 IN 1 D), ORAL
     Route: 048
     Dates: end: 20050101
  2. CELEBREX [Suspect]
     Indication: ROTATOR CUFF REPAIR
     Dosage: 200 MG (100 MG, 2 IN 1 D), ORAL
     Route: 048
     Dates: end: 20050101
  3. BEXTRA [Suspect]
     Indication: ARTHRITIS
     Dosage: (1 IN 1 D), ORAL
     Route: 048
  4. BEXTRA [Suspect]
     Indication: ROTATOR CUFF REPAIR
     Dosage: (1 IN 1 D), ORAL
     Route: 048
  5. TOPROL (METOPROLOL) [Concomitant]
  6. NORVASC [Concomitant]
  7. AVALIDE [Concomitant]
  8. NEXIUM [Concomitant]
  9. DOXEPIN HCL [Concomitant]
  10. ATIVAN [Concomitant]

REACTIONS (4)
  - ACTIVITIES OF DAILY LIVING IMPAIRED [None]
  - DIFFICULTY IN WALKING [None]
  - DRUG INEFFECTIVE [None]
  - EMPHYSEMA [None]
